FAERS Safety Report 5964322-5 (Version None)
Quarter: 2008Q4

REPORT INFORMATION
  Report Type: 
  Country: None (occurrence: None)
  Receive Date: 20081124
  Receipt Date: 20081120
  Transmission Date: 20090506
  Serious: Yes (Other)
  Sender: FDA-Public Use
  Company Number: US-PFIZER INC-2008098538

PATIENT
  Sex: Female

DRUGS (1)
  1. GEODON [Suspect]

REACTIONS (4)
  - GASTRIC DISORDER [None]
  - GASTRIC OPERATION [None]
  - INTENTIONAL DRUG MISUSE [None]
  - MALABSORPTION [None]
